FAERS Safety Report 18342199 (Version 1)
Quarter: 2020Q4

REPORT INFORMATION
  Report Type: Spontaneous
  Country: DE (occurrence: DE)
  Receive Date: 20201005
  Receipt Date: 20201005
  Transmission Date: 20210113
  Serious: No
  Sender: FDA-Public Use
  Company Number: DE-HORMOSAN PHARMA GMBH-2020-00376

PATIENT
  Age: 17 Year
  Sex: Female
  Weight: 42 kg

DRUGS (1)
  1. YIZNELL 20 0,02 MG/3 MG FILMTABLETTEN [Suspect]
     Active Substance: DROSPIRENONE\ETHINYL ESTRADIOL
     Indication: PRODUCT USED FOR UNKNOWN INDICATION
     Dosage: 1 DOSAGE FORM, QD
     Route: 065
     Dates: start: 20200110

REACTIONS (1)
  - Vulvovaginal dryness [Unknown]

NARRATIVE: CASE EVENT DATE: 20200112
